FAERS Safety Report 8060772 (Version 2)
Quarter: 2013Q2

REPORT INFORMATION
  Report Type: Spontaneous
  Country: JP (occurrence: JP)
  Receive Date: 20110729
  Receipt Date: 20130416
  Transmission Date: 20140414
  Serious: No
  Sender: FDA-Public Use
  Company Number: JP-PFIZER INC-2011168978

PATIENT
  Age: 16 Year
  Sex: Male

DRUGS (1)
  1. VFEND [Suspect]

REACTIONS (1)
  - Liver function test abnormal [Unknown]
